FAERS Safety Report 6615951-7 (Version None)
Quarter: 2010Q1

REPORT INFORMATION
  Report Type: 
  Country: None (occurrence: None)
  Receive Date: 20100305
  Receipt Date: 20100226
  Transmission Date: 20100710
  Serious: Yes (Other)
  Sender: FDA-Public Use
  Company Number: A0847041A

PATIENT
  Age: 49 Year
  Sex: Male

DRUGS (5)
  1. TYKERB [Suspect]
     Indication: BREAST CANCER
     Dosage: 1250MG PER DAY
     Route: 048
     Dates: start: 20100101
  2. XELODA [Suspect]
  3. EYE DROPS [Concomitant]
  4. VITAMINS [Concomitant]
  5. IMODIUM [Concomitant]

REACTIONS (2)
  - DIARRHOEA [None]
  - RETINAL DETACHMENT [None]
